FAERS Safety Report 9413251 (Version 1)
Quarter: 2013Q3

REPORT INFORMATION
  Report Type: Spontaneous
  Country: None (occurrence: None)
  Receive Date: 20130709
  Receipt Date: 20130709
  Transmission Date: 20140515
  Serious: Yes (Hospitalization)
  Sender: FDA-Public Use
  Company Number: 08-AUR-04705

PATIENT
  Age: 28 Year
  Sex: Female

DRUGS (1)
  1. CIPROFLOXACIN (CIPROFLOXACIN) [Suspect]
     Indication: URINARY TRACT INFECTION
     Dosage: 800 MG (400 MG, 2 IN 1 D), INTRAVENOUS
     Route: 042

REACTIONS (2)
  - Urticaria [None]
  - Tenosynovitis [None]
